FAERS Safety Report 20203941 (Version 2)
Quarter: 2022Q1

REPORT INFORMATION
  Report Type: Spontaneous
  Country: CH (occurrence: CH)
  Receive Date: 20211219
  Receipt Date: 20220104
  Transmission Date: 20220423
  Serious: Yes (Hospitalization, Other)
  Sender: FDA-Public Use
  Company Number: CH-ABBVIE-21K-151-4112193-00

PATIENT
  Age: 78 Year
  Sex: Male
  Weight: 72 kg

DRUGS (11)
  1. VENETOCLAX [Suspect]
     Active Substance: VENETOCLAX
     Indication: Acute myeloid leukaemia
     Route: 048
     Dates: start: 20210614, end: 20210629
  2. VENETOCLAX [Suspect]
     Active Substance: VENETOCLAX
     Route: 048
     Dates: start: 20210629, end: 20210630
  3. VENETOCLAX [Suspect]
     Active Substance: VENETOCLAX
     Route: 048
     Dates: start: 20210630, end: 20210722
  4. VENETOCLAX [Suspect]
     Active Substance: VENETOCLAX
     Route: 048
     Dates: start: 20210922
  5. VIDAZA [Concomitant]
     Active Substance: AZACITIDINE
     Indication: Acute myeloid leukaemia
  6. BACTRIM [Concomitant]
     Active Substance: SULFAMETHOXAZOLE\TRIMETHOPRIM
     Indication: Antifungal prophylaxis
     Dosage: 800/160MG
     Route: 048
  7. VALTREX [Concomitant]
     Active Substance: VALACYCLOVIR HYDROCHLORIDE
     Indication: Antiviral prophylaxis
  8. VITAMIN D3 [Concomitant]
     Active Substance: CHOLECALCIFEROL
     Indication: Vitamin D deficiency
     Route: 048
  9. GINKGO [Concomitant]
     Active Substance: GINKGO
     Indication: Product used for unknown indication
     Route: 048
  10. POLYETHYLENE GLYCOLS [Concomitant]
     Active Substance: POLYETHYLENE GLYCOLS
     Indication: Constipation
     Dosage: ON DEMAND
     Route: 048
  11. GRANISETRON [Concomitant]
     Active Substance: GRANISETRON
     Indication: Nausea
     Dosage: ON DEMAND
     Route: 048

REACTIONS (9)
  - Febrile infection [Recovered/Resolved]
  - Febrile infection [Recovered/Resolved]
  - Bronchopulmonary aspergillosis [Not Recovered/Not Resolved]
  - Blast cells present [Recovered/Resolved]
  - Neutropenia [Not Recovered/Not Resolved]
  - Thrombocytopenia [Recovered/Resolved]
  - Anaemia [Not Recovered/Not Resolved]
  - Vitamin D deficiency [Unknown]
  - Nausea [Unknown]

NARRATIVE: CASE EVENT DATE: 20210722
